FAERS Safety Report 17005915 (Version 1)
Quarter: 2019Q4

REPORT INFORMATION
  Report Type: Spontaneous
  Country: US (occurrence: US)
  Receive Date: 20190926
  Receipt Date: 20190926
  Transmission Date: 20200122
  Serious: Yes (Hospitalization)
  Sender: FDA-Public Use
  Company Number: None

PATIENT
  Age: 71 Year
  Sex: Male
  Weight: 122 kg

DRUGS (9)
  1. LENVATINIB [Suspect]
     Active Substance: LENVATINIB
     Dates: start: 20190215
  2. LENVATINIB [Concomitant]
     Active Substance: LENVATINIB
  3. ONDANSETRON 4MG [Concomitant]
     Active Substance: ONDANSETRON
  4. LENVATINIB [Suspect]
     Active Substance: LENVATINIB
     Route: 048
     Dates: start: 20181028, end: 20190208
  5. NIFEDIPINE. [Concomitant]
     Active Substance: NIFEDIPINE
  6. OXYCODONE-ACETAMINOPHEN 5-325 MG TABLET [Concomitant]
  7. MAGNESIUM CITRATE. [Concomitant]
     Active Substance: MAGNESIUM CITRATE
  8. PANTOPRAZOLE 40 MG EC TABLET [Concomitant]
  9. SPIRONOLACTONE 25MG TABLET [Concomitant]
     Active Substance: SPIRONOLACTONE

REACTIONS (4)
  - Gastric ulcer perforation [None]
  - Post procedural complication [None]
  - Therapy cessation [None]
  - Hypoventilation [None]

NARRATIVE: CASE EVENT DATE: 20190208
